FAERS Safety Report 9444806 (Version 21)
Quarter: 2015Q4

REPORT INFORMATION
  Report Type: Report from Study
  Country: US (occurrence: US)
  Receive Date: 20130807
  Receipt Date: 20151105
  Transmission Date: 20160305
  Serious: Yes (Hospitalization, Other)
  Sender: FDA-Public Use
  Company Number: US-SANOFI-AVENTIS-2013SA078735

PATIENT
  Age: 62 Year
  Sex: Female
  Weight: 66.67 kg

DRUGS (11)
  1. VESICARE [Concomitant]
     Active Substance: SOLIFENACIN SUCCINATE
     Dosage: 5 MG
  2. BUTRANS [Concomitant]
     Active Substance: BUPRENORPHINE
  3. SIMVASTATIN. [Concomitant]
     Active Substance: SIMVASTATIN
  4. TRAZODONE [Concomitant]
     Active Substance: TRAZODONE HYDROCHLORIDE
     Dosage: 1-3 TABLETS AT BED TIME?300 MG
  5. AUBAGIO [Suspect]
     Active Substance: TERIFLUNOMIDE
     Indication: MULTIPLE SCLEROSIS
     Route: 048
     Dates: start: 2014
  6. PROMETHAZINE [Concomitant]
     Active Substance: PROMETHAZINE\PROMETHAZINE HYDROCHLORIDE
  7. TOPIRAMATE. [Concomitant]
     Active Substance: TOPIRAMATE
     Dosage: 50 MG
  8. AUBAGIO [Suspect]
     Active Substance: TERIFLUNOMIDE
     Indication: MULTIPLE SCLEROSIS
     Route: 048
     Dates: start: 20130425, end: 201408
  9. ALPRAZOLAM. [Concomitant]
     Active Substance: ALPRAZOLAM
  10. DESMOPRESSIN ACETATE. [Concomitant]
     Active Substance: DESMOPRESSIN ACETATE
  11. AMITIZA [Concomitant]
     Active Substance: LUBIPROSTONE

REACTIONS (39)
  - Depression [Unknown]
  - Vitamin B12 abnormal [Unknown]
  - Liver disorder [Unknown]
  - Memory impairment [Unknown]
  - Speech disorder [Unknown]
  - Back pain [Unknown]
  - Bladder disorder [Unknown]
  - Neuritis [Unknown]
  - Pollakiuria [Unknown]
  - Liver function test abnormal [Unknown]
  - Heart rate increased [Recovered/Resolved]
  - Weight decreased [Unknown]
  - Neck pain [Unknown]
  - Multiple sclerosis relapse [Recovered/Resolved]
  - Decreased appetite [Unknown]
  - Malaise [Unknown]
  - Nasopharyngitis [Unknown]
  - Cough [Recovering/Resolving]
  - Drug ineffective [Unknown]
  - Vomiting [Unknown]
  - Migraine [Unknown]
  - Respiratory disorder [Unknown]
  - Dyspnoea [Recovering/Resolving]
  - Unevaluable event [Unknown]
  - Asthenia [Unknown]
  - Bronchitis [Unknown]
  - Diarrhoea [Unknown]
  - Spinal osteoarthritis [Unknown]
  - Confusional state [Unknown]
  - Viral infection [Recovering/Resolving]
  - Headache [Recovered/Resolved]
  - Gastrooesophageal reflux disease [Recovering/Resolving]
  - Dysphonia [Recovering/Resolving]
  - Pharyngitis [Unknown]
  - Blood cholesterol increased [Unknown]
  - Cough [Unknown]
  - Pyrexia [Unknown]
  - Sinusitis [Unknown]
  - Blood count abnormal [Not Recovered/Not Resolved]

NARRATIVE: CASE EVENT DATE: 2013
